FAERS Safety Report 17510628 (Version 1)
Quarter: 2020Q1

REPORT INFORMATION
  Report Type: Report from Study
  Country: CN (occurrence: CN)
  Receive Date: 20200306
  Receipt Date: 20200306
  Transmission Date: 20200409
  Serious: Yes (Other)
  Sender: FDA-Public Use
  Company Number: CN-ROCHE-2559116

PATIENT

DRUGS (4)
  1. PACLITAXEL. [Concomitant]
     Active Substance: PACLITAXEL
     Indication: NON-SMALL CELL LUNG CANCER
     Route: 042
  2. BEVACIZUMAB. [Suspect]
     Active Substance: BEVACIZUMAB
     Route: 042
  3. CARBOPLATIN. [Concomitant]
     Active Substance: CARBOPLATIN
     Indication: NON-SMALL CELL LUNG CANCER
     Dosage: THE AREA UNDER THE CURVE WAS 6
     Route: 042
  4. BEVACIZUMAB. [Suspect]
     Active Substance: BEVACIZUMAB
     Indication: NON-SMALL CELL LUNG CANCER
     Route: 042

REACTIONS (13)
  - Neutrophil count decreased [Unknown]
  - Proteinuria [Unknown]
  - Aspartate aminotransferase increased [Unknown]
  - Cardiac failure congestive [Unknown]
  - Hypertension [Unknown]
  - Embolism [Unknown]
  - Fistula [Unknown]
  - Thrombocytopenia [Unknown]
  - Haemorrhage [Unknown]
  - Infusion related reaction [Unknown]
  - White blood cell count decreased [Unknown]
  - Anaemia [Unknown]
  - Alanine aminotransferase increased [Unknown]
